FAERS Safety Report 7951926-3 (Version None)
Quarter: 2011Q4

REPORT INFORMATION
  Report Type: 
  Country: None (occurrence: None)
  Receive Date: 20111201
  Receipt Date: 20111123
  Transmission Date: 20120403
  Serious: Yes (Hospitalization, Other)
  Sender: FDA-Public Use
  Company Number: US-AMGEN-USASP2011013486

PATIENT
  Age: 55 Year
  Sex: Female

DRUGS (2)
  1. ENBREL [Suspect]
     Indication: RHEUMATOID ARTHRITIS
     Dosage: 50 MG, QWK
     Dates: start: 20100622, end: 20111015
  2. ENBREL [Suspect]
     Dosage: 50 MG, QWK
     Dates: start: 20100622

REACTIONS (15)
  - ARTHRALGIA [None]
  - GAIT DISTURBANCE [None]
  - ORTHOSTATIC HYPOTENSION [None]
  - DECREASED APPETITE [None]
  - RASH PAPULAR [None]
  - ADVERSE DRUG REACTION [None]
  - ASTHENIA [None]
  - SMALL INTESTINAL OBSTRUCTION [None]
  - CARDIAC STRESS TEST [None]
  - DEHYDRATION [None]
  - PAIN [None]
  - JOINT STIFFNESS [None]
  - MOBILITY DECREASED [None]
  - INFLUENZA LIKE ILLNESS [None]
  - ANAEMIA [None]
